FAERS Safety Report 22636474 (Version 1)
Quarter: 2023Q2

REPORT INFORMATION
  Report Type: Spontaneous
  Country: US (occurrence: US)
  Receive Date: 20230623
  Receipt Date: 20230623
  Transmission Date: 20230721
  Serious: No
  Sender: FDA-Public Use
  Company Number: US-PFIZER INC-202300227842

PATIENT
  Age: 53 Year
  Sex: Female
  Weight: 61.23 kg

DRUGS (1)
  1. NURTEC ODT [Suspect]
     Active Substance: RIMEGEPANT SULFATE
     Indication: Migraine prophylaxis
     Dosage: UNKNOWN DOSE SWALLOWED IT WITH WATER EVERY OTHER DAY
     Route: 048
     Dates: start: 202302, end: 202305

REACTIONS (2)
  - Vomiting [Recovered/Resolved]
  - Drug ineffective [Unknown]

NARRATIVE: CASE EVENT DATE: 20230101
